FAERS Safety Report 18315008 (Version 1)
Quarter: 2020Q3

REPORT INFORMATION
  Report Type: Spontaneous
  Country: US (occurrence: US)
  Receive Date: 20200925
  Receipt Date: 20200925
  Transmission Date: 20201103
  Serious: No
  Sender: FDA-Public Use
  Company Number: US-009507513-2009USA002596

PATIENT
  Sex: Female

DRUGS (2)
  1. BELSOMRA [Suspect]
     Active Substance: SUVOREXANT
     Dosage: UNK MILLIGRAM
     Route: 048
  2. LUNESTA [Suspect]
     Active Substance: ESZOPICLONE
     Dosage: 2 MILLIGRAM
     Route: 048
     Dates: end: 20200828

REACTIONS (6)
  - Lung disorder [Unknown]
  - Malaise [Unknown]
  - Chest discomfort [Unknown]
  - Pulmonary pain [Unknown]
  - Cardiac disorder [Unknown]
  - Chest pain [Unknown]
